FAERS Safety Report 16919886 (Version 1)
Quarter: 2019Q4

REPORT INFORMATION
  Report Type: Spontaneous
  Country: US (occurrence: US)
  Receive Date: 20190822
  Receipt Date: 20190822
  Transmission Date: 20200122
  Serious: No
  Sender: FDA-Public Use
  Company Number: None

PATIENT
  Age: 49 Year
  Sex: Female

DRUGS (1)
  1. HUMIRA [Suspect]
     Active Substance: ADALIMUMAB
     Indication: PSORIATIC ARTHROPATHY
     Route: 058
     Dates: start: 20140620

REACTIONS (6)
  - Accidental exposure to product [None]
  - Incorrect dose administered [None]
  - Injection site pain [None]
  - Wrong technique in product usage process [None]
  - Injection site extravasation [None]
  - Product formulation issue [None]

NARRATIVE: CASE EVENT DATE: 20190820
